FAERS Safety Report 4626666-9 (Version None)
Quarter: 2005Q2

REPORT INFORMATION
  Report Type: 
  Country: None (occurrence: None)
  Receive Date: 20050405
  Receipt Date: 20050321
  Transmission Date: 20051028
  Serious: Yes (Hospitalization, Other)
  Sender: FDA-Public Use
  Company Number: FR-RB-1424-2005

PATIENT
  Age: 26 Year
  Sex: Male
  Weight: 94 kg

DRUGS (2)
  1. BUPRENORPHINE HCL [Suspect]
     Indication: DRUG WITHDRAWAL MAINTENANCE THERAPY
     Route: 060
     Dates: start: 19961206
  2. DEPAKENE [Suspect]
     Indication: EPILEPSY
     Dosage: 3 TABLETS QD
     Route: 048
     Dates: start: 20010201

REACTIONS (2)
  - EPILEPSY [None]
  - PULMONARY EMBOLISM [None]
